FAERS Safety Report 25077857 (Version 3)
Quarter: 2025Q2

REPORT INFORMATION
  Report Type: Spontaneous
  Country: US (occurrence: US)
  Receive Date: 20250314
  Receipt Date: 20250630
  Transmission Date: 20250717
  Serious: No
  Sender: ABBVIE
  Company Number: US-ABBVIE-6175967

PATIENT
  Age: 67 Year
  Sex: Female

DRUGS (3)
  1. DURYSTA [Suspect]
     Active Substance: BIMATOPROST
     Indication: Glaucoma
     Route: 047
     Dates: start: 20240910
  2. DURYSTA [Suspect]
     Active Substance: BIMATOPROST
     Indication: Oedema
  3. PREDNISONE [Concomitant]
     Active Substance: PREDNISONE
     Indication: Corneal oedema
     Dates: start: 20240218

REACTIONS (1)
  - Corneal oedema [Unknown]

NARRATIVE: CASE EVENT DATE: 20250218
